FAERS Safety Report 4715204-8 (Version None)
Quarter: 2005Q3

REPORT INFORMATION
  Report Type: 
  Country: None (occurrence: None)
  Receive Date: 20050715
  Receipt Date: 20050712
  Transmission Date: 20060218
  Serious: Yes (Death)
  Sender: FDA-Public Use
  Company Number: PHHO2005JP11030

PATIENT

DRUGS (1)
  1. GLEEVEC [Suspect]
     Indication: GASTROINTESTINAL STROMAL TUMOUR
     Dosage: 200 MG, QD
     Dates: start: 20050703

REACTIONS (2)
  - INTERSTITIAL LUNG DISEASE [None]
  - PULMONARY OEDEMA [None]
